FAERS Safety Report 5205099-0 (Version None)
Quarter: 2007Q1

REPORT INFORMATION
  Report Type: 
  Country: None (occurrence: None)
  Receive Date: 20070110
  Receipt Date: 20061031
  Transmission Date: 20070707
  Serious: No
  Sender: FDA-Public Use
  Company Number: US-BRISTOL-MYERS SQUIBB COMPANY-13561766

PATIENT
  Age: 16 Year
  Sex: Male
  Weight: 66 kg

DRUGS (4)
  1. ABILIFY [Suspect]
     Indication: ANXIETY
     Dates: start: 20050201
  2. ABILIFY [Suspect]
     Indication: DEPRESSION
     Dates: start: 20050201
  3. ABILIFY [Suspect]
     Indication: BIPOLAR DISORDER
     Dates: start: 20050201
  4. CLARINEX [Concomitant]

REACTIONS (3)
  - DRUG INEFFECTIVE [None]
  - DYSKINESIA [None]
  - TREMOR [None]
